FAERS Safety Report 11251809 (Version 1)
Quarter: 2015Q3

REPORT INFORMATION
  Report Type: Spontaneous
  Country: US (occurrence: US)
  Receive Date: 20150708
  Receipt Date: 20150708
  Transmission Date: 20151125
  Serious: Yes (Other)
  Sender: FDA-Public Use
  Company Number: US-ELI_LILLY_AND_COMPANY-US201206001879

PATIENT
  Sex: Male
  Weight: 73.47 kg

DRUGS (10)
  1. ALIMTA [Suspect]
     Active Substance: PEMETREXED DISODIUM
     Indication: LUNG NEOPLASM MALIGNANT
     Dosage: UNK, UNKNOWN
     Route: 042
     Dates: start: 20110726, end: 20120327
  2. VITAMIN B12 [Concomitant]
     Active Substance: CYANOCOBALAMIN
     Dosage: UNK
     Dates: start: 20110718, end: 20120425
  3. ASACOL [Concomitant]
     Active Substance: MESALAMINE
  4. CENTRUM SILVER [Concomitant]
     Active Substance: VITAMINS
  5. FOLIC ACID. [Concomitant]
     Active Substance: FOLIC ACID
     Dosage: UNK
     Dates: start: 20110718
  6. CORTICOSTEROID NOS [Concomitant]
     Active Substance: CORTICOSTEROID NOS
     Dosage: UNK
     Dates: start: 20110725
  7. OXYCODONE [Concomitant]
     Active Substance: OXYCODONE
  8. TEMAZEPAM. [Concomitant]
     Active Substance: TEMAZEPAM
  9. ASPIRIN. [Concomitant]
     Active Substance: ASPIRIN
  10. CARVEDILOL. [Concomitant]
     Active Substance: CARVEDILOL

REACTIONS (1)
  - Neoplasm progression [Not Recovered/Not Resolved]
